FAERS Safety Report 4746600-0 (Version None)
Quarter: 2005Q3

REPORT INFORMATION
  Report Type: 
  Country: None (occurrence: None)
  Receive Date: 20050815
  Receipt Date: 20050805
  Transmission Date: 20060218
  Serious: Yes (Hospitalization)
  Sender: FDA-Public Use
  Company Number: 2005-06-2261

PATIENT
  Sex: Female

DRUGS (2)
  1. ALBUTEROL SULFATE AUTOHALER [Suspect]
     Dosage: ORAL AER INH
     Route: 055
  2. ALBUTEROL SULFATE AUTOHALER [Suspect]

REACTIONS (9)
  - COUGH [None]
  - DRUG INEFFECTIVE [None]
  - DYSGEUSIA [None]
  - INSOMNIA [None]
  - LUNG DISORDER [None]
  - NOCTURNAL DYSPNOEA [None]
  - PAROSMIA [None]
  - PHARMACEUTICAL PRODUCT COMPLAINT [None]
  - TONGUE DRY [None]
